FAERS Safety Report 6696286-3 (Version None)
Quarter: 2010Q2

REPORT INFORMATION
  Report Type: 
  Country: None (occurrence: None)
  Receive Date: 20100426
  Receipt Date: 20100414
  Transmission Date: 20101027
  Serious: Yes (Other)
  Sender: FDA-Public Use
  Company Number: GB-JNJFOC-20100306293

PATIENT
  Age: 56 Year
  Sex: Male

DRUGS (8)
  1. ITRACONAZOLE [Suspect]
     Indication: BRONCHOPULMONARY ASPERGILLOSIS ALLERGIC
     Route: 048
  2. ITRACONAZOLE [Suspect]
     Route: 048
  3. THEOPHYLLINE [Concomitant]
     Route: 065
  4. LORATADINE [Concomitant]
     Route: 065
  5. FLUTICASONE PROPIONATE [Concomitant]
     Route: 055
  6. SALMETEROL [Concomitant]
     Route: 065
  7. SALBUTAMOL [Concomitant]
     Route: 065
  8. LATANOPROST [Concomitant]
     Route: 047

REACTIONS (4)
  - ABDOMINAL DISCOMFORT [None]
  - DRUG LEVEL INCREASED [None]
  - NAUSEA [None]
  - TREMOR [None]
